FAERS Safety Report 10173357 (Version 1)
Quarter: 2014Q2

REPORT INFORMATION
  Report Type: Spontaneous
  Country: US (occurrence: US)
  Receive Date: 20140515
  Receipt Date: 20140515
  Transmission Date: 20141212
  Serious: No
  Sender: FDA-Public Use
  Company Number: US-BAUSCH-BL-2013-000090

PATIENT
  Sex: Male

DRUGS (9)
  1. BROMDAY 0.09% [Suspect]
     Indication: POSTOPERATIVE CARE
     Dosage: 1 DROP; DAILY; LEFT EYE
     Route: 047
     Dates: start: 20121011
  2. PREDNISOLONE ACETATE [Concomitant]
     Indication: POSTOPERATIVE CARE
     Dosage: 1 DROP; THREE TIMES A DAY; LEFT EYE
     Route: 047
     Dates: start: 20121004, end: 20121004
  3. PREDNISOLONE ACETATE [Concomitant]
     Dosage: 1 DROP; SIX TIMES A DAY; LEFT EYE
     Route: 047
     Dates: start: 20121005, end: 20121009
  4. PREDNISOLONE ACETATE [Concomitant]
     Dosage: 1 DROP; FOUR TIMES A DAY; LEFT EYE
     Route: 047
     Dates: start: 20121010, end: 20121120
  5. PREDNISOLONE ACETATE [Concomitant]
     Dosage: 1 DROP; THREE TIMES A DAY; LEFT EYE
     Route: 047
     Dates: start: 20121121, end: 20121127
  6. PREDNISOLONE ACETATE [Concomitant]
     Dosage: 1 DROP; TWICE A DAY; LEFT EYE
     Route: 047
     Dates: start: 20121128, end: 20121204
  7. PREDNISOLONE ACETATE [Concomitant]
     Dosage: 1 DROP; DAILY; LEFT EYE
     Route: 047
     Dates: start: 20121205, end: 20121211
  8. MURO 128 5% OPHTHALMIC SOLUTION [Concomitant]
     Indication: CORNEAL OEDEMA
     Dosage: 1 DROP; FOUR TIMES A DAY; LEFT EYE
     Route: 047
     Dates: start: 20121207, end: 20121212
  9. MURO 128 5% OPHTHALMIC SOLUTION [Concomitant]
     Dosage: 1 DROP; THREE TIMES A DAY; LEFT EYE
     Route: 047
     Dates: start: 20130104

REACTIONS (1)
  - Vision blurred [Not Recovered/Not Resolved]
